FAERS Safety Report 14374629 (Version 2)
Quarter: 2018Q1

REPORT INFORMATION
  Report Type: Spontaneous
  Country: TN (occurrence: TN)
  Receive Date: 20180111
  Receipt Date: 20180212
  Transmission Date: 20180509
  Serious: Yes (Other)
  Sender: FDA-Public Use
  Company Number: TN-SUN PHARMACEUTICAL INDUSTRIES LTD-2017RR-159825

PATIENT
  Age: 61 Year
  Sex: Male

DRUGS (6)
  1. PACLITAXEL. [Suspect]
     Active Substance: PACLITAXEL
     Dosage: THREE OTHER CYCLES EVERY 21 DAYS
     Route: 065
  2. CARBOPLATIN. [Suspect]
     Active Substance: CARBOPLATIN
     Indication: MALIGNANT PERITONEAL NEOPLASM
     Dosage: CARBOPLATIN AIR UNDER CURVE 5 DAY 1, EVERY 21 DAYS
     Route: 065
  3. CARBOPLATIN. [Suspect]
     Active Substance: CARBOPLATIN
     Dosage: THREE OTHER CYCLES EVERY 21 DAYS
  4. CARBOPLATIN. [Suspect]
     Active Substance: CARBOPLATIN
     Dosage: 8 CYCLES, EVERY 21 DAYS
  5. PACLITAXEL. [Suspect]
     Active Substance: PACLITAXEL
     Dosage: 8 CYCLES, EVERY 21 DAYS
     Route: 065
  6. PACLITAXEL. [Suspect]
     Active Substance: PACLITAXEL
     Indication: MALIGNANT PERITONEAL NEOPLASM
     Dosage: 175 MG/M2
     Route: 065

REACTIONS (2)
  - Neuropathy peripheral [Unknown]
  - Drug effect incomplete [Unknown]
